FAERS Safety Report 21540314 (Version 1)
Quarter: 2022Q4

REPORT INFORMATION
  Report Type: Report from Study
  Country: US (occurrence: US)
  Receive Date: 20221102
  Receipt Date: 20221102
  Transmission Date: 20230113
  Serious: No
  Sender: FDA-Public Use
  Company Number: US-ABBVIE-4151099

PATIENT
  Sex: Female

DRUGS (4)
  1. HUMIRA [Suspect]
     Active Substance: ADALIMUMAB
     Indication: Psoriatic arthropathy
     Dosage: CITRATE FREE
     Route: 058
  2. Moderna [Concomitant]
     Indication: COVID-19 immunisation
     Dosage: 1ST DOSE
     Route: 030
  3. Moderna [Concomitant]
     Indication: COVID-19 immunisation
     Dosage: 2ND DOSE
     Route: 030
  4. Moderna [Concomitant]
     Indication: COVID-19 immunisation
     Dosage: 3RD DOSE
     Route: 030

REACTIONS (2)
  - Infection [Recovered/Resolved]
  - Animal bite [Recovered/Resolved]
